FAERS Safety Report 6380298-3 (Version None)
Quarter: 2009Q3

REPORT INFORMATION
  Report Type: 
  Country: None (occurrence: None)
  Receive Date: 20090929
  Receipt Date: 20090918
  Transmission Date: 20100115
  Serious: Yes (Other)
  Sender: FDA-Public Use
  Company Number: US-WYE-H10618909

PATIENT
  Sex: Male

DRUGS (1)
  1. PRISTIQ [Suspect]
     Indication: DEPRESSION
     Route: 048
     Dates: end: 20090101

REACTIONS (5)
  - ERYTHEMA MULTIFORME [None]
  - EXFOLIATIVE RASH [None]
  - PAIN OF SKIN [None]
  - RASH PRURITIC [None]
  - STEVENS-JOHNSON SYNDROME [None]
